FAERS Safety Report 10976008 (Version 4)
Quarter: 2018Q3

REPORT INFORMATION
  Report Type: Spontaneous
  Country: US (occurrence: US)
  Receive Date: 20150401
  Receipt Date: 20180725
  Transmission Date: 20181010
  Serious: Yes (Death, Hospitalization, Other)
  Sender: FDA-Public Use
  Company Number: US-DSJP-DSU-2014-132262

PATIENT

DRUGS (8)
  1. SYNTHROID [Concomitant]
     Active Substance: LEVOTHYROXINE SODIUM
     Indication: HYPOTHYROIDISM
     Dosage: 25 ?G, QD
  2. NIACIN. [Concomitant]
     Active Substance: NIACIN
     Indication: HYPOVITAMINOSIS
     Dosage: 500 MG, QD
  3. RANITIDINE                         /00550802/ [Concomitant]
     Indication: ABDOMINAL PAIN UPPER
     Dosage: 150 MG, QD
  4. TRAMADOL HCL [Concomitant]
     Active Substance: TRAMADOL HYDROCHLORIDE
     Indication: PAIN
     Dosage: 50 MG, QD
  5. PRILOSEC [Concomitant]
     Active Substance: OMEPRAZOLE MAGNESIUM
     Indication: ABDOMINAL PAIN UPPER
     Dosage: 40 MG, QD
  6. BABY ASPIRIN [Concomitant]
     Active Substance: ASPIRIN
     Indication: ROUTINE HEALTH MAINTENANCE
     Dosage: 81 MG, QD
  7. BENICAR [Suspect]
     Active Substance: OLMESARTAN MEDOXOMIL
     Indication: HYPERTENSION
     Dosage: 40 MG, QD
     Route: 048
     Dates: start: 2002, end: 201212
  8. AZITHROMYCIN ANHYDROUS. [Concomitant]
     Active Substance: AZITHROMYCIN ANHYDROUS
     Indication: ANTIBIOTIC LEVEL
     Dosage: 500 MG, QD

REACTIONS (26)
  - Anaemia [Unknown]
  - Gastric ulcer [Unknown]
  - Sprue-like enteropathy [Recovered/Resolved]
  - Oesophageal stenosis [Unknown]
  - Wrist fracture [Unknown]
  - Adrenal insufficiency [Unknown]
  - Oesophageal ulcer [Recovering/Resolving]
  - Diverticulitis [Unknown]
  - Intestinal ischaemia [Unknown]
  - Hiatus hernia [Unknown]
  - Wound [Unknown]
  - Gastric ulcer haemorrhage [Unknown]
  - Small intestinal obstruction [Unknown]
  - Constipation [Unknown]
  - Thrombosis [Unknown]
  - Atrial fibrillation [Unknown]
  - Hip fracture [Unknown]
  - Fall [Unknown]
  - Urinary tract infection [Unknown]
  - Dysphagia [Unknown]
  - Duodenal stenosis [Unknown]
  - Sepsis [Unknown]
  - Reactive gastropathy [Unknown]
  - Impaired gastric emptying [Unknown]
  - Gastrooesophageal reflux disease [Unknown]
  - Duodenal ulcer [Unknown]

NARRATIVE: CASE EVENT DATE: 20040803
